FAERS Safety Report 8982960 (Version 1)
Quarter: 2012Q4

REPORT INFORMATION
  Report Type: 
  Country: FI (occurrence: FI)
  Receive Date: 20121224
  Receipt Date: 20121224
  Transmission Date: 20130627
  Serious: Yes (Other)
  Sender: FDA-Public Use
  Company Number: PHHY2012FI118503

PATIENT
  Age: 42 Year
  Sex: Female

DRUGS (1)
  1. LEPONEX [Suspect]
     Dosage: UNK UKN, UNK

REACTIONS (4)
  - Erysipelas [Not Recovered/Not Resolved]
  - Erythema [Not Recovered/Not Resolved]
  - White blood cell count decreased [Not Recovered/Not Resolved]
  - Neutrophil count decreased [Not Recovered/Not Resolved]
